FAERS Safety Report 19289368 (Version 4)
Quarter: 2022Q1

REPORT INFORMATION
  Report Type: Report from Study
  Country: US (occurrence: US)
  Receive Date: 20210521
  Receipt Date: 20220129
  Transmission Date: 20220423
  Serious: Yes (Other)
  Sender: FDA-Public Use
  Company Number: NVSC2021US106790

PATIENT
  Age: 68 Year
  Sex: Male

DRUGS (3)
  1. ENTRESTO [Suspect]
     Active Substance: SACUBITRIL\VALSARTAN
     Indication: Cardiac failure
     Dosage: 1 DOSAGE FORM, BID (49/51 MG)
     Route: 048
     Dates: start: 202011
  2. ENTRESTO [Suspect]
     Active Substance: SACUBITRIL\VALSARTAN
     Dosage: 1.5 DOSAGE FORM, BID (CUTTING TABLETS IN MORNING AND THE EVENING)
     Route: 065
  3. ENTRESTO [Suspect]
     Active Substance: SACUBITRIL\VALSARTAN
     Dosage: 1 DOSAGE FORM, BID (49/51 MG)
     Route: 048
     Dates: start: 20220123

REACTIONS (20)
  - Arrhythmia [Unknown]
  - Diabetes mellitus [Unknown]
  - Tinnitus [Unknown]
  - Dysstasia [Unknown]
  - Bone pain [Unknown]
  - Arthritis [Unknown]
  - Mental fatigue [Unknown]
  - Apathy [Unknown]
  - Insomnia [Unknown]
  - Depression [Unknown]
  - Temperature intolerance [Unknown]
  - Hyperhidrosis [Unknown]
  - Pain [Unknown]
  - Blood urine present [Unknown]
  - Joint swelling [Unknown]
  - Gait disturbance [Unknown]
  - Back disorder [Unknown]
  - Weight decreased [Unknown]
  - Fatigue [Unknown]
  - Wrong technique in product usage process [Unknown]

NARRATIVE: CASE EVENT DATE: 20201101
